FAERS Safety Report 15402244 (Version 1)
Quarter: 2018Q3

REPORT INFORMATION
  Report Type: Spontaneous
  Country: FR (occurrence: FR)
  Receive Date: 20180919
  Receipt Date: 20180919
  Transmission Date: 20181010
  Serious: Yes (Other)
  Sender: FDA-Public Use
  Company Number: FR-PFIZER INC-2018372038

PATIENT
  Age: 83 Year
  Sex: Male
  Weight: 79 kg

DRUGS (5)
  1. CALCIDOSE [CALCIUM CARBONATE;COLECALCIFEROL] [Concomitant]
     Active Substance: CALCIUM CARBONATE\CHOLECALCIFEROL
  2. FOSAVANCE [Concomitant]
     Active Substance: ALENDRONATE SODIUM\CHOLECALCIFEROL
  3. METHOTREXATE SODIUM. [Suspect]
     Active Substance: METHOTREXATE SODIUM
     Indication: RHEUMATOID ARTHRITIS
     Dosage: 7 DF, WEEKLY
     Route: 048
     Dates: start: 1988, end: 20171107
  4. LYRICA [Concomitant]
     Active Substance: PREGABALIN
  5. CORTANCYL [Concomitant]
     Active Substance: PREDNISONE

REACTIONS (2)
  - Hypertransaminasaemia [Recovered/Resolved]
  - Blood alkaline phosphatase increased [Recovered/Resolved]

NARRATIVE: CASE EVENT DATE: 201711
